FAERS Safety Report 5806338-5 (Version None)
Quarter: 2008Q3

REPORT INFORMATION
  Report Type: 
  Country: None (occurrence: None)
  Receive Date: 20080708
  Receipt Date: 20080624
  Transmission Date: 20090109
  Serious: Yes (Life-Threatening, Hospitalization)
  Sender: FDA-Public Use
  Company Number: WAES 0806USA08291

PATIENT
  Age: 82 Year
  Sex: Male
  Weight: 107.5025 kg

DRUGS (12)
  1. CAP VORINOSTAT UNK [Suspect]
     Indication: ACUTE MYELOID LEUKAEMIA
     Dosage: 400 MG DAILY PO
     Route: 048
     Dates: start: 20080504, end: 20080517
  2. DECITABINE UNK [Suspect]
     Indication: ACUTE MYELOID LEUKAEMIA
     Dosage: 200 MG/M [2] 1X IV
     Route: 042
     Dates: start: 20080429, end: 20080503
  3. DECITABINE UNK [Suspect]
     Indication: ACUTE MYELOID LEUKAEMIA
     Dosage: 200 MG/M [2] 1X IV
     Route: 042
     Dates: start: 20080609, end: 20080613
  4. COUMADIN [Concomitant]
  5. LOVENOX [Concomitant]
  6. NORVASC [Concomitant]
  7. PROTONIX [Concomitant]
  8. VICODIN [Concomitant]
  9. ACYCLOVIR [Concomitant]
  10. NYSTATIN [Concomitant]
  11. ROPINIROLE [Concomitant]
  12. MULTI-VITAMINS [Concomitant]

REACTIONS (12)
  - ASTHENIA [None]
  - CHILLS [None]
  - CLOSTRIDIAL INFECTION [None]
  - COUGH [None]
  - FATIGUE [None]
  - FEBRILE NEUTROPENIA [None]
  - HYPERHIDROSIS [None]
  - OROPHARYNGEAL PAIN [None]
  - PLEURITIC PAIN [None]
  - RETCHING [None]
  - THROMBOCYTOPENIA [None]
  - WHITE BLOOD CELL COUNT DECREASED [None]
